FAERS Safety Report 9947767 (Version 1)
Quarter: 2014Q1

REPORT INFORMATION
  Report Type: Report from Study
  Country: US (occurrence: US)
  Receive Date: 20140303
  Receipt Date: 20140303
  Transmission Date: 20141002
  Serious: No
  Sender: FDA-Public Use
  Company Number: US-ABBVIE-13P-163-1056774-00

PATIENT
  Age: 29 Year
  Sex: Female
  Weight: 59.02 kg

DRUGS (2)
  1. HUMIRA [Suspect]
     Indication: PSORIASIS
     Dates: start: 20100309
  2. HUMIRA [Suspect]
     Indication: PSORIASIS
     Dosage: 80 MG LOADING DOSE IN 2 SEPARATE INJECTIONS
     Route: 058
     Dates: start: 20130227, end: 20130227

REACTIONS (2)
  - Swelling face [Not Recovered/Not Resolved]
  - Hepatic function abnormal [Unknown]
